FAERS Safety Report 9315285 (Version 2)
Quarter: 2013Q3

REPORT INFORMATION
  Report Type: Spontaneous
  Country: PT (occurrence: PT)
  Receive Date: 20130529
  Receipt Date: 20130816
  Transmission Date: 20140515
  Serious: Yes (Other)
  Sender: FDA-Public Use
  Company Number: PT-B.I. PHARMACEUTICALS,INC./RIDGEFIELD-2013-BI-15141BY

PATIENT
  Age: 54 Year
  Sex: Male

DRUGS (18)
  1. TELMISARTAN [Suspect]
     Dosage: 80 MG
     Route: 065
  2. NIFEDIPINE [Suspect]
     Dosage: 120 MG
     Route: 065
  3. FUROSEMIDE [Suspect]
     Dosage: 120 MG
     Route: 065
  4. CLOPIDOGREL [Suspect]
     Dosage: 75 MG
     Route: 065
  5. ISOSORBIDE MONONITRATE [Suspect]
     Dosage: 40 MG
     Route: 065
  6. B-COMPLEX [VITAMIN B NOS) [Suspect]
     Dosage: UNK
     Route: 065
  7. FOLIC ACID [Suspect]
     Dosage: 5 MG
     Route: 065
  8. RILMENIDINE [Suspect]
     Dosage: 2 MG
     Route: 065
  9. CLONIDINE [Suspect]
     Dosage: 0.3 MG
     Route: 065
  10. CARVEDILOL [Suspect]
     Dosage: 12.5 MG
     Route: 065
  11. FLUVASTATIN [Suspect]
     Dosage: 80 MG
     Route: 065
  12. SEVELAMER [Suspect]
     Dosage: 2400 MG
     Route: 065
  13. CALCITRIOL [Suspect]
     Dosage: 0.1071 MCG
     Route: 065
  14. FLUVOXAMINE [Suspect]
     Dosage: 50 MCG
     Route: 065
  15. TRAZODONE [Suspect]
     Dosage: 100 MCG
     Route: 065
  16. INSULIN GLARGINE [Suspect]
     Dosage: 30 U
     Route: 065
  17. INSULIN GLULISINE [Suspect]
     Dosage: PRN
     Route: 065
  18. ERYTHROPOIETIN [Suspect]
     Dosage: 857.1429 U
     Route: 065

REACTIONS (5)
  - Polyneuropathy [Not Recovered/Not Resolved]
  - Gait disturbance [Not Recovered/Not Resolved]
  - Pain [Not Recovered/Not Resolved]
  - Muscle atrophy [Not Recovered/Not Resolved]
  - Sensory loss [Not Recovered/Not Resolved]
